FAERS Safety Report 4265566-3 (Version None)
Quarter: 2004Q1

REPORT INFORMATION
  Report Type: 
  Country: None (occurrence: None)
  Receive Date: 20040106
  Receipt Date: 20031224
  Transmission Date: 20041129
  Serious: Yes (Death)
  Sender: FDA-Public Use
  Company Number: 03P-163-0245856-00

PATIENT
  Age: 1 Day
  Sex: Male
  Weight: 0.685 kg

DRUGS (1)
  1. KALETRA [Suspect]

REACTIONS (5)
  - CEREBRAL HAEMORRHAGE NEONATAL [None]
  - MATERNAL DRUGS AFFECTING FOETUS [None]
  - NEONATAL DISORDER [None]
  - PREMATURE BABY [None]
  - PULMONARY EMBOLISM [None]
